FAERS Safety Report 25872719 (Version 1)
Quarter: 2025Q4

REPORT INFORMATION
  Report Type: Spontaneous
  Country: CN (occurrence: CN)
  Receive Date: 20251002
  Receipt Date: 20251002
  Transmission Date: 20260118
  Serious: Yes (Other)
  Sender: ROCHE
  Company Number: CN-ROCHE-10000394061

PATIENT
  Age: 72 Year
  Sex: Female

DRUGS (2)
  1. TOCILIZUMAB [Suspect]
     Active Substance: TOCILIZUMAB
     Indication: Rheumatoid arthritis
     Route: 042
     Dates: start: 20250827, end: 20250827
  2. TRIPTERYGIUM WILFORDII ROOT [Suspect]
     Active Substance: TRIPTERYGIUM WILFORDII ROOT
     Indication: Rheumatoid arthritis
     Route: 048
     Dates: start: 20250826, end: 20250901

REACTIONS (3)
  - Dermatitis allergic [Not Recovered/Not Resolved]
  - White blood cell count decreased [Not Recovered/Not Resolved]
  - Neutrophil count decreased [Not Recovered/Not Resolved]

NARRATIVE: CASE EVENT DATE: 20250901
